FAERS Safety Report 7276456-6 (Version None)
Quarter: 2011Q1

REPORT INFORMATION
  Report Type: 
  Country: None (occurrence: None)
  Receive Date: 20110204
  Receipt Date: 20110125
  Transmission Date: 20110831
  Serious: Yes (Other)
  Sender: FDA-Public Use
  Company Number: US-WATSON-2011-00929

PATIENT
  Sex: Female

DRUGS (19)
  1. FENTANYL-50 [Suspect]
  2. CYMBALTA [Concomitant]
     Indication: DEPRESSION
     Dosage: 60 MG, DAILY
     Route: 048
  3. NITROGLYCERIN [Concomitant]
     Indication: CHEST PAIN
     Dosage: 0.4 MG, PRN
     Route: 060
  4. PROTONIX [Concomitant]
     Indication: PRODUCT USED FOR UNKNOWN INDICATION
     Dosage: 40 MG, QHS
     Route: 050
  5. XANAX [Concomitant]
     Indication: PRODUCT USED FOR UNKNOWN INDICATION
     Dosage: 1 MG IN THE AM, 2MG IN THE PM
     Route: 048
  6. APIDRA [Concomitant]
     Indication: DIABETES MELLITUS
     Dosage: SLIDING SCALE BEFORE MEALS
     Route: 058
  7. HYDROCODONE BITARTRATE [Concomitant]
     Indication: PAIN
     Dosage: 7.5 MG, BID
  8. VITAMIN B6 [Concomitant]
     Indication: PRODUCT USED FOR UNKNOWN INDICATION
     Dosage: 100 MG, QHS
     Route: 048
  9. PLAVIX [Concomitant]
     Indication: CORONARY ARTERY DISEASE
     Dosage: 75 MG, QHS
     Route: 048
  10. VITAMIN A                          /00056001/ [Concomitant]
     Indication: PRODUCT USED FOR UNKNOWN INDICATION
     Dosage: 200 MI DAILY
     Route: 048
  11. ZOFRAN [Concomitant]
     Indication: NAUSEA
     Dosage: 4 MG, PRN
     Route: 048
  12. DEPAKOTE [Concomitant]
     Indication: MIGRAINE
     Dosage: 500 MG, DAILY
     Route: 048
  13. POTASSIUM                          /00031402/ [Concomitant]
     Indication: PRODUCT USED FOR UNKNOWN INDICATION
     Dosage: 20 MEQ, BID
     Route: 048
  14. LEVSIN [Concomitant]
     Indication: ABDOMINAL PAIN UPPER
     Dosage: 0.125 MG, TID PRN
     Route: 060
  15. FENTANYL-50 [Suspect]
     Indication: ABDOMINAL PAIN
     Dosage: UNK
     Route: 062
  16. LANTUS [Concomitant]
     Indication: DIABETES MELLITUS
     Dosage: 30 IU, QHS
     Route: 058
  17. FOLIC ACID [Concomitant]
     Indication: PRODUCT USED FOR UNKNOWN INDICATION
     Dosage: 800 MG, QHS
     Route: 048
  18. VITAMIN B12                        /00056201/ [Concomitant]
     Indication: PRODUCT USED FOR UNKNOWN INDICATION
     Dosage: 1ML EVERY MONTH, INTO MUSCLE
     Route: 030
  19. CALTRATE + D                       /00944201/ [Concomitant]
     Indication: PRODUCT USED FOR UNKNOWN INDICATION
     Dosage: 1 TAB DAILY
     Route: 048

REACTIONS (7)
  - BLOOD POTASSIUM DECREASED [None]
  - APPLICATION SITE PRURITUS [None]
  - DRUG WITHDRAWAL SYNDROME [None]
  - LOSS OF CONSCIOUSNESS [None]
  - VOMITING [None]
  - DRUG INEFFECTIVE [None]
  - FEELING ABNORMAL [None]
